FAERS Safety Report 26059350 (Version 1)
Quarter: 2025Q4

REPORT INFORMATION
  Report Type: Spontaneous
  Country: US (occurrence: None)
  Receive Date: 20251117
  Receipt Date: 20251117
  Transmission Date: 20260118
  Serious: Yes (Death)
  Sender: FDA-CTU
  Company Number: None

PATIENT
  Age: 81 Year
  Sex: Female

DRUGS (19)
  1. DUPIXENT [Suspect]
     Active Substance: DUPILUMAB
     Indication: Dermatitis atopic
     Dosage: FREQUENCY : EVERY OTHER WEEK;?
     Route: 058
     Dates: start: 20250312
  2. ADVAIR DISKUS 250/50MCG [Concomitant]
  3. AMLODIPINE BESYLATE [Concomitant]
     Active Substance: AMLODIPINE BESYLATE
  4. ASPIRIN 81MG EC LOW DOSE [Concomitant]
  5. BETAMETHASONE DIP 0.05% AUG CRM 15G [Concomitant]
  6. BUPROPION SR 100MG TABLETS [Concomitant]
  7. CALCIUM+ D 1200MG SOFTGELS [Concomitant]
  8. CLOBETASOL 0.05% SHAMPOO 118ML [Concomitant]
  9. DOXYCYCLINE HYCLATE [Concomitant]
     Active Substance: DOXYCYCLINE HYCLATE
  10. HYDROXYZINE HYDROCHLORIDE [Concomitant]
     Active Substance: HYDROXYZINE HYDROCHLORIDE
  11. LATANOPROST 0.005% OPHTH SOLN 2.5ML [Concomitant]
  12. MINOCYCLINE HYDROCHLORIDE [Concomitant]
     Active Substance: MINOCYCLINE HYDROCHLORIDE
  13. MUPIROCIN 2% OINTMENT 15GM [Concomitant]
  14. NIACINAMIDE 500MG TABLETS [Concomitant]
  15. SPIRIVA 18MCG CAPS 30S + HANDIHALER [Concomitant]
  16. TRIAMTERENE 50MG CAPSULES [Concomitant]
  17. VENTOLIN HFA INH W/DOS CTR 200PUFFS [Concomitant]
  18. VITAMIN C 1000MG TABLETS [Concomitant]
  19. TRAZODONE [Concomitant]
     Active Substance: TRAZODONE HYDROCHLORIDE

REACTIONS (1)
  - Hospitalisation [None]
